FAERS Safety Report 6440326-3 (Version None)
Quarter: 2009Q4

REPORT INFORMATION
  Report Type: 
  Country: None (occurrence: None)
  Receive Date: 20091113
  Receipt Date: 20091103
  Transmission Date: 20100525
  Serious: Yes (Hospitalization, Other)
  Sender: FDA-Public Use
  Company Number: US-ABBOTT-09P-163-0606781-00

PATIENT
  Sex: Male
  Weight: 36.32 kg

DRUGS (6)
  1. NIASPAN [Suspect]
     Indication: BLOOD TRIGLYCERIDES INCREASED
     Dates: start: 20090801, end: 20091011
  2. PROTONIX [Concomitant]
     Indication: PROPHYLAXIS AGAINST GASTROINTESTINAL ULCER
  3. COZAAR [Concomitant]
     Indication: HYPERTENSION
  4. CRESTOR [Concomitant]
     Indication: HYPERCHOLESTEROLAEMIA
  5. TRICOR [Concomitant]
     Indication: HYPERCHOLESTEROLAEMIA
     Dates: start: 20091001
  6. TRICOR [Concomitant]
     Dates: end: 20091001

REACTIONS (12)
  - COUGH [None]
  - FLUSHING [None]
  - H1N1 INFLUENZA [None]
  - INTERVERTEBRAL DISC DEGENERATION [None]
  - INTERVERTEBRAL DISC PROTRUSION [None]
  - LYMPHADENOPATHY MEDIASTINAL [None]
  - PAIN [None]
  - PNEUMONIA [None]
  - PULMONARY THROMBOSIS [None]
  - PYREXIA [None]
  - RALES [None]
  - WHEEZING [None]
